FAERS Safety Report 5106644-6 (Version None)
Quarter: 2006Q3

REPORT INFORMATION
  Report Type: 
  Country: None (occurrence: None)
  Receive Date: 20060918
  Receipt Date: 20060905
  Transmission Date: 20061208
  Serious: Yes (Death)
  Sender: FDA-Public Use
  Company Number: US-JNJFOC-20060902459

PATIENT
  Age: 49 Year
  Sex: Female

DRUGS (1)
  1. ASPIRIN [Suspect]
     Indication: DRUG USE FOR UNKNOWN INDICATION
     Route: 048

REACTIONS (4)
  - ACUTE RESPIRATORY DISTRESS SYNDROME [None]
  - DRUG TOXICITY [None]
  - HEPATIC FUNCTION ABNORMAL [None]
  - INTENTIONAL OVERDOSE [None]
